FAERS Safety Report 7822685-X (Version None)
Quarter: 2011Q4

REPORT INFORMATION
  Report Type: 
  Country: None (occurrence: None)
  Receive Date: 20111018
  Receipt Date: 20111012
  Transmission Date: 20120403
  Serious: Yes (Hospitalization, Other)
  Sender: FDA-Public Use
  Company Number: CH-MERCK-1110USA01774

PATIENT
  Age: 57 Year
  Sex: Female

DRUGS (14)
  1. INVANZ [Suspect]
     Indication: PYELONEPHRITIS
     Route: 042
     Dates: start: 20110516, end: 20110518
  2. INVANZ [Suspect]
     Route: 042
     Dates: start: 20110911, end: 20110913
  3. CALCIMAGON D3 [Concomitant]
     Route: 048
  4. BIOFLORIN [Concomitant]
     Route: 065
  5. LEXOTANIL [Concomitant]
     Indication: SLEEP DISORDER
     Route: 048
  6. INVANZ [Suspect]
     Route: 042
     Dates: start: 20110911, end: 20110913
  7. INVANZ [Suspect]
     Route: 065
     Dates: start: 20100401
  8. INVANZ [Suspect]
     Route: 065
     Dates: start: 20100401
  9. DESLORATADINE [Concomitant]
     Route: 065
  10. INVANZ [Suspect]
     Indication: NEPHRITIC SYNDROME
     Route: 042
     Dates: start: 20110516, end: 20110518
  11. NEXIUM [Concomitant]
     Route: 048
  12. DEANXIT [Concomitant]
     Route: 048
  13. DURAGESIC-100 [Concomitant]
     Route: 065
  14. CENTRUM [Concomitant]
     Route: 048
     Dates: end: 20110913

REACTIONS (10)
  - NEPHROTIC SYNDROME [None]
  - PYELONEPHRITIS [None]
  - ABDOMINAL PAIN [None]
  - ALANINE AMINOTRANSFERASE INCREASED [None]
  - GAMMA-GLUTAMYLTRANSFERASE INCREASED [None]
  - ASPARTATE AMINOTRANSFERASE INCREASED [None]
  - BLOOD ALKALINE PHOSPHATASE INCREASED [None]
  - CHOLECYSTITIS ACUTE [None]
  - PYREXIA [None]
  - ESCHERICHIA TEST POSITIVE [None]
